FAERS Safety Report 8791638 (Version 4)
Quarter: 2013Q2

REPORT INFORMATION
  Report Type: Spontaneous
  Country: US (occurrence: US)
  Receive Date: 20120918
  Receipt Date: 20130524
  Transmission Date: 20140414
  Serious: Yes (Other)
  Sender: FDA-Public Use
  Company Number: US-PFIZER INC-2012225950

PATIENT
  Sex: Female

DRUGS (2)
  1. DETROL LA [Suspect]
     Dosage: UNK
     Dates: start: 20061201
  2. CELEBREX [Suspect]
     Dosage: UNK
     Dates: start: 20061201

REACTIONS (4)
  - Gastric disorder [Unknown]
  - Arthropathy [Unknown]
  - Pain [Unknown]
  - Pollakiuria [Unknown]
